FAERS Safety Report 7372172-0 (Version None)
Quarter: 2011Q1

REPORT INFORMATION
  Report Type: 
  Country: None (occurrence: None)
  Receive Date: 20110324
  Receipt Date: 20110321
  Transmission Date: 20110831
  Serious: Yes (Hospitalization)
  Sender: FDA-Public Use
  Company Number: A0919191A

PATIENT
  Age: 50 Year
  Sex: Female

DRUGS (4)
  1. PAIN MEDICATION [Concomitant]
  2. WATER PILL [Concomitant]
  3. ALLI [Suspect]
     Indication: WEIGHT LOSS DIET
     Route: 048
  4. HEART MEDICATION [Concomitant]

REACTIONS (13)
  - CHOLELITHIASIS [None]
  - PAIN [None]
  - INSOMNIA [None]
  - RECTAL DISCHARGE [None]
  - TREATMENT NONCOMPLIANCE [None]
  - HYPOTHYROIDISM [None]
  - GASTRIC DISORDER [None]
  - ARTERIOSCLEROSIS [None]
  - STEATORRHOEA [None]
  - LOSS OF CONSCIOUSNESS [None]
  - BLOOD POTASSIUM DECREASED [None]
  - THROMBOSIS [None]
  - BLADDER DISORDER [None]
